FAERS Safety Report 25172736 (Version 1)
Quarter: 2025Q2

REPORT INFORMATION
  Report Type: Spontaneous
  Country: IT (occurrence: IT)
  Receive Date: 20250408
  Receipt Date: 20250408
  Transmission Date: 20250717
  Serious: Yes (Hospitalization)
  Sender: SANDOZ
  Company Number: None

PATIENT
  Age: 31 Year
  Sex: Female

DRUGS (8)
  1. AZITHROMYCIN [Suspect]
     Active Substance: AZITHROMYCIN
     Indication: Suicidal ideation
     Route: 048
     Dates: start: 20250301, end: 20250301
  2. BROMAZEPAM [Suspect]
     Active Substance: BROMAZEPAM
     Indication: Suicidal ideation
     Route: 048
  3. LORAZEPAM [Suspect]
     Active Substance: LORAZEPAM
     Indication: Suicidal ideation
     Route: 048
     Dates: start: 20250301, end: 202503
  4. ACETAMINOPHEN [Suspect]
     Active Substance: ACETAMINOPHEN
     Indication: Suicidal ideation
     Route: 048
     Dates: start: 20250301, end: 20250301
  5. PREGABALIN [Suspect]
     Active Substance: PREGABALIN
     Indication: Suicidal ideation
     Route: 048
     Dates: start: 20250301, end: 20250301
  6. DIHYDROCODEINE THIOCYANATE [Suspect]
     Active Substance: DIHYDROCODEINE THIOCYANATE
     Indication: Suicidal ideation
     Route: 048
     Dates: start: 20250301, end: 20250301
  7. KETOROLAC TROMETHAMINE [Suspect]
     Active Substance: KETOROLAC TROMETHAMINE
     Indication: Suicidal ideation
     Route: 048
     Dates: start: 20250301, end: 20250301
  8. VENLAFAXINE [Suspect]
     Active Substance: VENLAFAXINE HYDROCHLORIDE
     Indication: Suicidal ideation
     Route: 048
     Dates: start: 20250301, end: 20250301

REACTIONS (4)
  - Drug abuse [Recovering/Resolving]
  - Cognitive disorder [Recovering/Resolving]
  - Mydriasis [Recovering/Resolving]
  - Suicidal ideation [Unknown]

NARRATIVE: CASE EVENT DATE: 20250302
